FAERS Safety Report 7460666-9 (Version None)
Quarter: 2011Q2

REPORT INFORMATION
  Report Type: 
  Country: None (occurrence: None)
  Receive Date: 20110505
  Receipt Date: 20110429
  Transmission Date: 20111010
  Serious: Yes (Other)
  Sender: FDA-Public Use
  Company Number: CHPA2011US06153

PATIENT
  Age: 69 Year
  Sex: Female
  Weight: 99.773 kg

DRUGS (2)
  1. MAALOX ANTACID/ANTIGAS MAX QDTABS ASST [Suspect]
     Dosage: UNK, PRN
     Route: 048
  2. MAALOX ANTACID/ANTIGAS MAX QDTABS ASST [Suspect]
     Indication: DYSPEPSIA
     Dosage: UNK, PRN
     Route: 048
     Dates: start: 20110429

REACTIONS (2)
  - DIABETES MELLITUS [None]
  - BLOOD GLUCOSE INCREASED [None]
